FAERS Safety Report 11121834 (Version 1)
Quarter: 2015Q2

REPORT INFORMATION
  Report Type: Report from Study
  Country: NL (occurrence: NL)
  Receive Date: 20150519
  Receipt Date: 20150519
  Transmission Date: 20150821
  Serious: Yes (Other)
  Sender: FDA-Public Use
  Company Number: NL-AMGEN-NLDSL2015047070

PATIENT
  Age: 71 Year
  Sex: Male

DRUGS (1)
  1. XGEVA [Suspect]
     Active Substance: DENOSUMAB
     Indication: PROPHYLAXIS
     Dosage: 1.7 ML, (70 MG/ML), UNK
     Route: 058
     Dates: start: 20150416

REACTIONS (4)
  - Neck pain [Unknown]
  - Terminal state [Unknown]
  - Hernia [Unknown]
  - Metastases to neck [Unknown]
